FAERS Safety Report 24172546 (Version 2)
Quarter: 2024Q4

REPORT INFORMATION
  Report Type: Report from Study
  Country: IT (occurrence: IT)
  Receive Date: 20240805
  Receipt Date: 20241221
  Transmission Date: 20250115
  Serious: Yes (Hospitalization, Other)
  Sender: AMGEN
  Company Number: IT-SA-SAC20240328001084

PATIENT
  Age: 53 Year
  Sex: Male
  Weight: 77 kg

DRUGS (25)
  1. CARFILZOMIB [Suspect]
     Active Substance: CARFILZOMIB
     Indication: Plasma cell myeloma refractory
     Dosage: 56 MG/M2, BIW
     Route: 065
     Dates: start: 20240416, end: 20240503
  2. CARFILZOMIB [Suspect]
     Active Substance: CARFILZOMIB
     Dosage: 56 MG/M2, BIW
     Route: 065
     Dates: start: 20240201, end: 20240216
  3. CARFILZOMIB [Suspect]
     Active Substance: CARFILZOMIB
     Dosage: 20 MG/M2, BIW
     Route: 065
     Dates: start: 20240104, end: 20240105
  4. CARFILZOMIB [Suspect]
     Active Substance: CARFILZOMIB
     Dosage: 56 MG/M2, BIW
     Route: 065
     Dates: start: 20240110, end: 20240117
  5. CARFILZOMIB [Suspect]
     Active Substance: CARFILZOMIB
     Dosage: 56 MG/M2, BIW
     Route: 065
     Dates: start: 20240307, end: 20240322
  6. ISATUXIMAB [Suspect]
     Active Substance: ISATUXIMAB
     Indication: Plasma cell myeloma refractory
     Dosage: 10 MG/KG, BIW
     Route: 065
     Dates: start: 20240201, end: 20240215
  7. ISATUXIMAB [Suspect]
     Active Substance: ISATUXIMAB
     Dosage: 10 MG/KG, QW
     Route: 065
     Dates: start: 20240104, end: 20240123
  8. ISATUXIMAB [Suspect]
     Active Substance: ISATUXIMAB
     Dosage: 10 MG/KG, BIW
     Route: 065
     Dates: start: 20240307, end: 20240321
  9. ISATUXIMAB [Suspect]
     Active Substance: ISATUXIMAB
     Dosage: 10 MG/KG, BIW
     Route: 065
     Dates: start: 20240416, end: 20240502
  10. DEXAMETHASONE [Suspect]
     Active Substance: DEXAMETHASONE
     Indication: Plasma cell myeloma refractory
     Dosage: 20 MG, QD
     Route: 065
     Dates: start: 20240416, end: 20240416
  11. DEXAMETHASONE [Suspect]
     Active Substance: DEXAMETHASONE
     Dosage: 10 MG, QD
     Route: 065
     Dates: start: 20240417
  12. DEXAMETHASONE [Suspect]
     Active Substance: DEXAMETHASONE
     Dosage: 8 MG, QD
     Route: 065
     Dates: start: 20240104, end: 20240131
  13. DEXAMETHASONE [Suspect]
     Active Substance: DEXAMETHASONE
     Dosage: 8 MG, QD
     Route: 065
     Dates: start: 20240307, end: 20240403
  14. DEXAMETHASONE [Suspect]
     Active Substance: DEXAMETHASONE
     Dosage: 8 MG, QD
     Route: 065
     Dates: start: 20240201, end: 20240228
  15. PANTOPRAZOLE SODIUM [Concomitant]
     Active Substance: PANTOPRAZOLE SODIUM
     Indication: Prophylaxis
     Dosage: UNK
     Route: 065
     Dates: start: 20240104
  16. BACTRIM [Concomitant]
     Active Substance: SULFAMETHOXAZOLE\TRIMETHOPRIM
     Indication: Prophylaxis
     Dosage: UNK
     Route: 065
     Dates: start: 20240104
  17. CEFTRIAXONE [Concomitant]
     Active Substance: CEFTRIAXONE
     Indication: Product used for unknown indication
     Dosage: UNK
     Route: 065
     Dates: start: 20231218, end: 20231219
  18. ACYCLOVIR [Concomitant]
     Active Substance: ACYCLOVIR
     Indication: Product used for unknown indication
     Dosage: UNK
     Route: 065
     Dates: start: 20231216
  19. PREDNISONE [Concomitant]
     Active Substance: PREDNISONE
     Indication: Prophylaxis
     Dosage: UNK
     Route: 065
     Dates: start: 20240416
  20. CHLORPHENIRAMINE MALEATE [Concomitant]
     Active Substance: CHLORPHENIRAMINE MALEATE
     Indication: Prophylaxis
     Dosage: UNK UNK, QCY
     Route: 065
     Dates: start: 20240104
  21. ACETAMINOPHEN [Concomitant]
     Active Substance: ACETAMINOPHEN
     Indication: Prophylaxis
     Dosage: UNK UNK, QCY
     Route: 065
     Dates: start: 20240104
  22. ALLOPURINOL [Concomitant]
     Active Substance: ALLOPURINOL
     Indication: Prophylaxis
     Dosage: UNK
     Route: 065
     Dates: start: 20240104
  23. COVERAM [Concomitant]
     Active Substance: AMLODIPINE\PERINDOPRIL
     Indication: Prophylaxis
     Dosage: UNK
     Route: 065
     Dates: start: 20240416
  24. RETACRIT [Concomitant]
     Active Substance: EPOETIN ALFA-EPBX
     Indication: Prophylaxis
     Dosage: UNK
     Route: 065
     Dates: start: 20240425
  25. NIRMATRELVIR [Concomitant]
     Active Substance: NIRMATRELVIR
     Dosage: UNK
     Route: 065
     Dates: start: 20231201, end: 20231205

REACTIONS (6)
  - Acquired haemophilia [Recovered/Resolved]
  - Acquired haemophilia [Recovered/Resolved]
  - Acquired haemophilia [Recovered/Resolved]
  - Thrombosis [Recovered/Resolved]
  - Thrombophlebitis [Recovered/Resolved]
  - Renal colic [Recovered/Resolved]

NARRATIVE: CASE EVENT DATE: 20240229
